FAERS Safety Report 8020296-7 (Version None)
Quarter: 2012Q1

REPORT INFORMATION
  Report Type: 
  Country: None (occurrence: None)
  Receive Date: 20120103
  Receipt Date: 20111227
  Transmission Date: 20120608
  Serious: Yes (Hospitalization, Other)
  Sender: FDA-Public Use
  Company Number: US-TEVA-313114USA

PATIENT
  Sex: Female

DRUGS (6)
  1. BENZTROPINE MESYLATE [Suspect]
  2. OLANZAPINE [Suspect]
     Indication: PSYCHOTIC DISORDER
     Dosage: AS NEEDED
     Route: 048
     Dates: start: 20111101
  3. LITHIUM CARBONATE [Concomitant]
     Dosage: 900 MILLIGRAM;
  4. QUETIAPINE [Concomitant]
  5. ZOLPIDEM TARTRATE [Concomitant]
  6. CLOZAPINE [Suspect]
     Indication: PSYCHOTIC DISORDER
     Dosage: 75 MG IN AM, 50 MG HS
     Route: 048

REACTIONS (21)
  - SUICIDAL IDEATION [None]
  - HEART RATE INCREASED [None]
  - COGNITIVE DISORDER [None]
  - ASTHENIA [None]
  - VOMITING [None]
  - SELF INJURIOUS BEHAVIOUR [None]
  - CHOKING [None]
  - STATUS EPILEPTICUS [None]
  - OCULAR ICTERUS [None]
  - PAROSMIA [None]
  - MENTAL IMPAIRMENT [None]
  - AGGRESSION [None]
  - YELLOW SKIN [None]
  - PANIC REACTION [None]
  - TOXICITY TO VARIOUS AGENTS [None]
  - OCULAR HYPERAEMIA [None]
  - PYREXIA [None]
  - FEELING ABNORMAL [None]
  - SOMNOLENCE [None]
  - CONVULSION [None]
  - SPEECH DISORDER [None]
